FAERS Safety Report 19410524 (Version 1)
Quarter: 2021Q2

REPORT INFORMATION
  Report Type: Other
  Country: GB (occurrence: GB)
  Receive Date: 20210614
  Receipt Date: 20210614
  Transmission Date: 20210717
  Serious: Yes (Other)
  Sender: FDA-Public Use
  Company Number: GB-CELLTRION INC.-2021GB007873

PATIENT

DRUGS (50)
  1. TRASTUZUMAB (UNKNOWN) [Suspect]
     Active Substance: TRASTUZUMAB
     Dosage: 714 MG, Q3WEEKS (LOADING DOSE 1ST CYCLE) (DOSAGE FORM: 230)
     Route: 042
     Dates: start: 20161115, end: 20161115
  2. DOCETAXEL. [Suspect]
     Active Substance: DOCETAXEL
     Indication: BREAST CANCER METASTATIC
     Dosage: 148 MG, Q3WEEKS
     Route: 042
     Dates: start: 20161114, end: 20161114
  3. PACLITAXEL. [Suspect]
     Active Substance: PACLITAXEL
     Indication: BREAST CANCER METASTATIC
     Dosage: 162 MG
     Route: 042
     Dates: start: 20210326
  4. PERTUZUMAB. [Suspect]
     Active Substance: PERTUZUMAB
     Dosage: 840 MG, Q3WEEKS (DOSAGE FORM:230)
     Route: 042
     Dates: start: 20161115, end: 20161115
  5. TRASTUZUMAB EMTANSINE [Suspect]
     Active Substance: ADO-TRASTUZUMAB EMTANSINE
     Dosage: 320 MG, Q3WEEKS (DOSAGE FORM:230)
     Route: 042
     Dates: start: 20200824, end: 20210209
  6. TRASTUZUMAB EMTANSINE [Suspect]
     Active Substance: ADO-TRASTUZUMAB EMTANSINE
     Dosage: 320 MG, Q3WEEKS (DOSAGE FORM:230)
     Route: 042
     Dates: start: 20200824
  7. SARS?COV?2 VACCINE [Concomitant]
     Dosage: 0.3 ML, 1ST DOSE
     Route: 030
     Dates: start: 20210203, end: 20210203
  8. DEXAMETHASONE. [Concomitant]
     Active Substance: DEXAMETHASONE
     Dosage: 16 MG (DOSAGE FORM:245)
     Route: 048
     Dates: start: 20161124, end: 20170216
  9. FLUCLOXACILLIN [Concomitant]
     Active Substance: FLUCLOXACILLIN
     Dosage: 8 G, DAILY (DOSAGE FORM:245)
     Route: 048
     Dates: start: 20210409, end: 20210413
  10. LOPERAMIDE [Concomitant]
     Active Substance: LOPERAMIDE
     Dosage: 1 UNK, DAILY (DOSAGE FORM:245)
     Route: 048
     Dates: start: 20171206, end: 2017
  11. CAPECITABINE. [Suspect]
     Active Substance: CAPECITABINE
     Indication: BREAST CANCER METASTATIC
     Dosage: 3600 MG, DAILY (DOSAGE FORM: 245) (1800 MG TWICE A DAY)
     Route: 048
     Dates: start: 20190730, end: 20200728
  12. CAPECITABINE. [Suspect]
     Active Substance: CAPECITABINE
     Dosage: 3900 MG, DAILY (DOSAGE FORM: 245) (1950 MG TWICE A DAY)
     Route: 048
     Dates: start: 20180426, end: 20180709
  13. CAPECITABINE. [Suspect]
     Active Substance: CAPECITABINE
     Dosage: 3900 MG, DAILY (DOSAGE FORM: 245) (1950 MG TWICE A DAY)
     Route: 048
     Dates: start: 20180426, end: 20180709
  14. DOCETAXEL. [Suspect]
     Active Substance: DOCETAXEL
     Dosage: 88 MG, Q3WEEKS
     Route: 042
     Dates: start: 20170126, end: 20180216
  15. TRASTUZUMAB (UNKNOWN) [Suspect]
     Active Substance: TRASTUZUMAB
     Dosage: 714 MG, Q3WEEKS (LOADING DOSE 1ST CYCLE) (DOSAGE FORM: 230)
     Route: 042
     Dates: start: 20161115, end: 20161115
  16. CAPECITABINE. [Suspect]
     Active Substance: CAPECITABINE
     Dosage: 3600 MG, DAILY (DOSAGE FORM: 245) (1800 MG TWICE A DAY)
     Route: 048
     Dates: start: 20190730, end: 20200728
  17. CAPECITABINE. [Suspect]
     Active Substance: CAPECITABINE
     Dosage: 5000 MG, DAILY (DOSAGE FORM: 245) 92500 MG TWO TIMES A DAY)
     Route: 048
     Dates: start: 20180405, end: 20180405
  18. DOCETAXEL. [Suspect]
     Active Substance: DOCETAXEL
     Dosage: 148 MG, Q3WEEKS
     Route: 042
     Dates: start: 20161114, end: 20161114
  19. PERTUZUMAB. [Suspect]
     Active Substance: PERTUZUMAB
     Indication: BREAST CANCER METASTATIC
     Dosage: 420 MG, Q3WEEKS (DOSAGE FORM: 230)
     Route: 042
     Dates: start: 20161206, end: 20180208
  20. CETIRIZINE [Concomitant]
     Active Substance: CETIRIZINE HYDROCHLORIDE
     Dosage: 10 MG, DAILY (DOSAGE FORM: 245)
     Route: 048
     Dates: start: 20180415, end: 20180421
  21. SARS?COV?2 VACCINE [Concomitant]
     Dosage: 0.3 ML, 2ND DOSE
     Route: 030
     Dates: start: 20210415, end: 20210415
  22. DOCETAXEL. [Suspect]
     Active Substance: DOCETAXEL
     Dosage: 148 MG, Q3WEEKS
     Route: 042
     Dates: start: 20161114, end: 20161114
  23. TRASTUZUMAB EMTANSINE [Suspect]
     Active Substance: ADO-TRASTUZUMAB EMTANSINE
     Dosage: 320 MG, Q3WEEKS (DOSAGE FORM:230)
     Route: 042
     Dates: start: 20200824
  24. FLUCLOXACILLIN [Concomitant]
     Active Substance: FLUCLOXACILLIN
     Dosage: 2000 MG, DAILY (DOSAGE FORM:245)
     Route: 048
     Dates: start: 20180628, end: 20180704
  25. CLOTRIMAZOLE. [Concomitant]
     Active Substance: CLOTRIMAZOLE
  26. TRASTUZUMAB (UNKNOWN) [Suspect]
     Active Substance: TRASTUZUMAB
     Dosage: 600 MG, Q3WEEKS (DOSAGE FORM: 231)
     Route: 058
  27. DOCETAXEL. [Suspect]
     Active Substance: DOCETAXEL
     Dosage: 88 MG, Q3WEEKS
     Route: 042
     Dates: start: 20170126, end: 20180216
  28. DOCETAXEL. [Suspect]
     Active Substance: DOCETAXEL
     Dosage: 108 MG, Q3WEEKS
     Route: 042
     Dates: start: 20161206, end: 20170126
  29. DOCETAXEL. [Suspect]
     Active Substance: DOCETAXEL
     Dosage: 108 MG, Q3WEEKS
     Route: 042
     Dates: start: 20161206, end: 20170126
  30. DEXAMETHASONE. [Concomitant]
     Active Substance: DEXAMETHASONE
     Dosage: 16 MG (DOSAGE FORM:245)
     Route: 048
     Dates: start: 201712, end: 20200506
  31. PREDNISOLONE. [Concomitant]
     Active Substance: PREDNISOLONE
  32. VITAMIN D [Concomitant]
     Active Substance: VITAMIN D NOS
  33. CAPECITABINE. [Suspect]
     Active Substance: CAPECITABINE
     Dosage: 3600 MG, DAILY (DOSAGE FORM: 245) (1800 MG TWICE A DAY)
     Route: 048
     Dates: start: 20190730, end: 20200728
  34. CAPECITABINE. [Suspect]
     Active Substance: CAPECITABINE
     Dosage: 3900 MG, DAILY (DOSAGE FORM: 245) (1950 MG TWICE A DAY)
     Route: 048
     Dates: start: 20180426, end: 20180709
  35. CAPECITABINE. [Suspect]
     Active Substance: CAPECITABINE
     Dosage: 5000 MG, DAILY (DOSAGE FORM: 245) (2500 MG TWO TIMES A DAY)
     Route: 048
     Dates: start: 20180405, end: 20180405
  36. DOCETAXEL. [Suspect]
     Active Substance: DOCETAXEL
     Dosage: 108 MG, Q3WEEKS
     Route: 042
     Dates: start: 20161206, end: 20170126
  37. PERTUZUMAB. [Suspect]
     Active Substance: PERTUZUMAB
     Dosage: 840 MG, Q3WEEKS (DOSAGE FORM:230)
     Route: 042
     Dates: start: 20161115, end: 20161115
  38. AMOXICILLIN. [Concomitant]
     Active Substance: AMOXICILLIN
     Dosage: 1500 MG, DAILY (DOSAGE FORM: 245)
     Route: 048
     Dates: start: 20191014, end: 20191021
  39. TRANEXAMIC ACID. [Concomitant]
     Active Substance: TRANEXAMIC ACID
     Dosage: 3 G, DAILY (DOSAGE FORM: 245)
     Route: 048
     Dates: start: 20210104, end: 20210104
  40. DOCETAXEL. [Suspect]
     Active Substance: DOCETAXEL
     Dosage: 88 MG, Q3WEEKS
     Route: 042
     Dates: start: 20170126, end: 20180216
  41. TRASTUZUMAB EMTANSINE [Suspect]
     Active Substance: ADO-TRASTUZUMAB EMTANSINE
     Indication: BREAST CANCER METASTATIC
     Dosage: 320 MG, Q3WEEKS (DOSAGE FORM:230)
     Route: 042
     Dates: start: 20200824, end: 20210209
  42. DIFFLAM [Concomitant]
     Dosage: 40 ML, DAILY
     Route: 048
     Dates: start: 20161206, end: 201703
  43. LISINOPRIL. [Concomitant]
     Active Substance: LISINOPRIL
     Dosage: 2.5 MG, DAILY (DOSAGE FORM: 245)
     Route: 048
     Dates: start: 20200928
  44. NITROFURANTOIN. [Concomitant]
     Active Substance: NITROFURANTOIN
     Dosage: 100 MG, DAILY (DOSAGE FORM:245)
     Route: 048
     Dates: start: 20201221, end: 20201228
  45. TRASTUZUMAB (UNKNOWN) [Suspect]
     Active Substance: TRASTUZUMAB
     Indication: BREAST CANCER METASTATIC
     Dosage: 525 MG, Q3WEEKS (DOSAGE FORM: 230)
     Route: 042
     Dates: start: 20161206, end: 20180208
  46. TRASTUZUMAB (UNKNOWN) [Suspect]
     Active Substance: TRASTUZUMAB
     Dosage: 525 MG, Q3WEEKS (DOSAGE FORM: 230)
     Route: 042
     Dates: start: 20161206, end: 20180208
  47. CAPECITABINE. [Suspect]
     Active Substance: CAPECITABINE
     Dosage: 5000 MG, DAILY (DOSAGE FORM: 245) (2500 MG TWO TIMES A DAY)
     Route: 048
     Dates: start: 20180405, end: 20180405
  48. PERTUZUMAB. [Suspect]
     Active Substance: PERTUZUMAB
     Dosage: 420 MG, Q3WEEKS (DOSAGE FORM: 230)
     Route: 042
     Dates: start: 20161206, end: 20180208
  49. AMOXICILLIN. [Concomitant]
     Active Substance: AMOXICILLIN
     Dosage: 1500 MG, DAILY (DOSAGE FORM:5)
     Route: 048
     Dates: start: 20190125, end: 20190129
  50. CITALOPRAM [Concomitant]
     Active Substance: CITALOPRAM HYDROBROMIDE
     Dosage: 20 MG, DAILY (DOSAGE FORM: 245)
     Route: 048
     Dates: start: 201707, end: 20180115

REACTIONS (2)
  - Incorrect route of product administration [Unknown]
  - Vascular device infection [Recovered/Resolved]

NARRATIVE: CASE EVENT DATE: 20210408
